FAERS Safety Report 5094977-1 (Version None)
Quarter: 2006Q3

REPORT INFORMATION
  Report Type: 
  Country: None (occurrence: None)
  Receive Date: 20060728
  Receipt Date: 20060406
  Transmission Date: 20061208
  Serious: No
  Sender: FDA-Public Use
  Company Number: COT_0510_2006

PATIENT
  Age: 76 Year
  Sex: Female
  Weight: 62.5964 kg

DRUGS (16)
  1. VENTAVIS [Suspect]
     Indication: PULMONARY HYPERTENSION
     Dosage: 5 MCG 7XD IH
     Route: 055
     Dates: start: 20060328
  2. BOSENTAN [Concomitant]
  3. SILDENAFIL [Concomitant]
  4. LASIX [Concomitant]
  5. SYNTHROID [Concomitant]
  6. MAGNESIUM [Concomitant]
  7. NEXIUM [Concomitant]
  8. SINGULAIR [Concomitant]
  9. ASPIRIN [Concomitant]
  10. ZOCOR [Concomitant]
  11. COREG [Concomitant]
  12. LEXAPRO [Concomitant]
  13. NORVASC [Concomitant]
  14. WARFARIN SODIUM [Concomitant]
  15. ZYRTEC [Concomitant]
  16. OXYGEN [Concomitant]

REACTIONS (2)
  - COUGH [None]
  - DYSPHONIA [None]
